APPROVED DRUG PRODUCT: SIGNIFOR LAR KIT
Active Ingredient: PASIREOTIDE PAMOATE
Strength: EQ 10MG BASE/VIAL
Dosage Form/Route: FOR SUSPENSION;INTRAMUSCULAR
Application: N203255 | Product #004
Applicant: RECORDATI RARE DISEASES INC
Approved: Jun 29, 2018 | RLD: Yes | RS: No | Type: RX

PATENTS:
Patent 7473761 | Expires: Dec 14, 2026
Patent 7759308 | Expires: Oct 25, 2026
Patent 9351923 | Expires: May 23, 2028